FAERS Safety Report 13879774 (Version 1)
Quarter: 2017Q3

REPORT INFORMATION
  Report Type: Spontaneous
  Country: US (occurrence: US)
  Receive Date: 20170818
  Receipt Date: 20170818
  Transmission Date: 20171127
  Serious: Yes (Other)
  Sender: FDA-Public Use
  Company Number: US-BEH-2017082857

PATIENT
  Age: 50 Year
  Sex: Female
  Weight: 80.27 kg

DRUGS (1)
  1. HIZENTRA [Suspect]
     Active Substance: HUMAN IMMUNOGLOBULIN G
     Indication: IMMUNODEFICIENCY
     Dosage: 15 G, QW
     Route: 058
     Dates: start: 20170327

REACTIONS (3)
  - Weight increased [Unknown]
  - Laceration [Unknown]
  - Wound infection [Unknown]

NARRATIVE: CASE EVENT DATE: 20170718
